FAERS Safety Report 17989318 (Version 1)
Quarter: 2020Q3

REPORT INFORMATION
  Report Type: Spontaneous
  Country: TR (occurrence: TR)
  Receive Date: 20200707
  Receipt Date: 20200707
  Transmission Date: 20201103
  Serious: Yes (Other)
  Sender: FDA-Public Use
  Company Number: TR-APOTEX-2020AP013223

PATIENT
  Sex: Male

DRUGS (1)
  1. PAXIL [Suspect]
     Active Substance: PAROXETINE HYDROCHLORIDE
     Indication: ANXIETY
     Dosage: 20 MILLIGRAM, BID
     Route: 065

REACTIONS (10)
  - Suicidal ideation [Unknown]
  - Sexual dysfunction [Unknown]
  - Hypoaesthesia [Unknown]
  - Drug dependence [Unknown]
  - Sluggishness [Unknown]
  - Somnolence [Not Recovered/Not Resolved]
  - Nausea [Not Recovered/Not Resolved]
  - Asthenia [Not Recovered/Not Resolved]
  - Lethargy [Unknown]
  - Intentional product use issue [Unknown]
